FAERS Safety Report 9521888 (Version 2)
Quarter: 2014Q1

REPORT INFORMATION
  Report Type: Spontaneous
  Country: US (occurrence: None)
  Receive Date: 20130305
  Receipt Date: 20140306
  Transmission Date: 20141002
  Serious: Yes (Other)
  Sender: FDA-Public Use
  Company Number: 163-21880-12072931

PATIENT
  Age: 70 Year
  Sex: Female
  Weight: 66.2 kg

DRUGS (9)
  1. REVLIMID (LENALIDOMIDE) (5 MILLIGRAM CAPSULES) [Suspect]
     Indication: PLASMA CELL MYELOMA
     Dosage: 5 MG, 21 IN 21 D, PO
     Route: 048
     Dates: start: 20120626
  2. PREDNISONE [Concomitant]
  3. ALERAN (OTHER THERAPEUTIC PRODUCTS) [Concomitant]
  4. VITAMIN D (ERGOCALCIFEROL) [Concomitant]
  5. ALL DAY CALCIUM ER (CALCIUM) [Concomitant]
  6. COMPLETE MULTIVITAMIN (MULTIVITAMINS) [Concomitant]
  7. PREMARIN (ESTROGENS CONJUGATED) [Concomitant]
  8. METFORMIN HCL (METFORMIN HYDROCHLORIDE) [Concomitant]
  9. LISINOPRIL [Concomitant]

REACTIONS (6)
  - Neutropenia [None]
  - Thrombocytopenia [None]
  - Rash pruritic [None]
  - Migraine [None]
  - Haemoglobin decreased [None]
  - Fatigue [None]
